FAERS Safety Report 6788488-2 (Version None)
Quarter: 2010Q2

REPORT INFORMATION
  Report Type: 
  Country: None (occurrence: None)
  Receive Date: 20100623
  Receipt Date: 20080321
  Transmission Date: 20101027
  Serious: No
  Sender: FDA-Public Use
  Company Number: US-PFIZER INC-2008024435

PATIENT
  Sex: Female
  Weight: 59.09 kg

DRUGS (2)
  1. AROMASIN [Suspect]
     Indication: BREAST CANCER
  2. ATENOLOL [Concomitant]
     Indication: EXTRASYSTOLES

REACTIONS (1)
  - VULVOVAGINAL DRYNESS [None]
